FAERS Safety Report 4571754-9 (Version None)
Quarter: 2005Q1

REPORT INFORMATION
  Report Type: 
  Country: None (occurrence: None)
  Receive Date: 20050202
  Receipt Date: 20050202
  Transmission Date: 20050727
  Serious: Yes (Hospitalization)
  Sender: FDA-Public Use
  Company Number: None

PATIENT
  Sex: Male

DRUGS (4)
  1. RITUXAN [Suspect]
     Indication: CHRONIC LYMPHOCYTIC LEUKAEMIA
     Dosage: INTRAVENOU
     Route: 042
     Dates: start: 20010113, end: 20030820
  2. FLOMAX [Concomitant]
  3. COUMADIN [Concomitant]
  4. PROTONIX [Concomitant]

REACTIONS (4)
  - BRADYCARDIA [None]
  - CHEST PAIN [None]
  - PULSE ABSENT [None]
  - THERAPY NON-RESPONDER [None]
